FAERS Safety Report 16988948 (Version 1)
Quarter: 2019Q4

REPORT INFORMATION
  Report Type: Spontaneous
  Country: US (occurrence: US)
  Receive Date: 20191104
  Receipt Date: 20191104
  Transmission Date: 20200122
  Serious: No
  Sender: FDA-Public Use
  Company Number: US-009507513-1910USA015513

PATIENT
  Age: 56 Year
  Sex: Female
  Weight: 52.62 kg

DRUGS (3)
  1. PRINIVIL [Suspect]
     Active Substance: LISINOPRIL
     Dosage: 2 TABLETS (10 MG) TAKEN DAILY, QD
     Route: 048
     Dates: start: 2018
  2. SUTENT [Concomitant]
     Active Substance: SUNITINIB MALATE
     Dosage: 1 DOSAGE FORM, QD
     Dates: start: 2018
  3. HYDROCHLOROTHIAZIDE. [Concomitant]
     Active Substance: HYDROCHLOROTHIAZIDE
     Dosage: 12.5 MILLIGRAM TABLET ONCE DAILY/QD
     Route: 048

REACTIONS (1)
  - Hypotension [Unknown]

NARRATIVE: CASE EVENT DATE: 20191024
